FAERS Safety Report 9985541 (Version 1)
Quarter: 2014Q1

REPORT INFORMATION
  Report Type: Spontaneous
  Country: JP (occurrence: JP)
  Receive Date: 20140307
  Receipt Date: 20140307
  Transmission Date: 20141002
  Serious: Yes (Other)
  Sender: FDA-Public Use
  Company Number: JP-JNJFOC-20140302609

PATIENT
  Age: 84 Year
  Sex: Female

DRUGS (8)
  1. XARELTO [Suspect]
     Indication: CEREBROVASCULAR ACCIDENT PROPHYLAXIS
     Route: 048
     Dates: start: 20121203
  2. XARELTO [Suspect]
     Indication: ATRIAL FIBRILLATION
     Route: 048
     Dates: start: 20121203
  3. CONIEL [Concomitant]
     Route: 048
  4. FEBUXOSTAT [Concomitant]
     Route: 048
  5. LANIRAPID [Concomitant]
     Route: 048
  6. OMEPRAL [Concomitant]
     Route: 065
  7. LASIX [Concomitant]
     Route: 048
  8. CADUET [Concomitant]
     Route: 048

REACTIONS (1)
  - Pericarditis [Recovering/Resolving]
